FAERS Safety Report 6507215-7 (Version None)
Quarter: 2009Q4

REPORT INFORMATION
  Report Type: 
  Country: None (occurrence: None)
  Receive Date: 20091221
  Receipt Date: 20091211
  Transmission Date: 20100525
  Serious: Yes (Hospitalization)
  Sender: FDA-Public Use
  Company Number: PHEH2009US15256

PATIENT
  Sex: Female

DRUGS (4)
  1. EXJADE [Suspect]
     Indication: IRON OVERLOAD
     Dosage: 1000 MG DAILY
     Route: 048
     Dates: start: 20091027
  2. EXJADE [Suspect]
     Indication: SICKLE CELL ANAEMIA
  3. FOLIC ACID [Concomitant]
  4. ASPIRIN [Concomitant]

REACTIONS (4)
  - CHOLECYSTECTOMY [None]
  - DISEASE PROGRESSION [None]
  - HAEMATURIA [None]
  - PANCREATITIS [None]
